FAERS Safety Report 10674696 (Version 1)
Quarter: 2014Q4

REPORT INFORMATION
  Report Type: Spontaneous
  Country: US (occurrence: None)
  Receive Date: 20141223
  Receipt Date: 20141223
  Transmission Date: 20150529
  Serious: Yes (Hospitalization)
  Sender: FDA-Public Use
  Company Number: None

PATIENT
  Age: 54 Year
  Sex: Female
  Weight: 94.8 kg

DRUGS (3)
  1. RITUXIMAB (MOAB C2B8 ANTI CD20, CHIMERIC) [Suspect]
     Active Substance: RITUXIMAB
     Dates: start: 20141209
  2. METHOTREXATE [Suspect]
     Active Substance: METHOTREXATE
     Dates: start: 20141210
  3. PROCARBAZINE [Suspect]
     Active Substance: PROCARBAZINE
     Dates: start: 20141216

REACTIONS (5)
  - Platelet count decreased [None]
  - Neutrophil count decreased [None]
  - Body temperature increased [None]
  - Upper respiratory tract infection [None]
  - White blood cell count decreased [None]

NARRATIVE: CASE EVENT DATE: 20141217
